FAERS Safety Report 5876321-2 (Version None)
Quarter: 2008Q3

REPORT INFORMATION
  Report Type: 
  Country: None (occurrence: None)
  Receive Date: 20080908
  Receipt Date: 20080908
  Transmission Date: 20090109
  Serious: No
  Sender: FDA-Public Use
  Company Number: None

PATIENT
  Age: 67 Year
  Sex: Male

DRUGS (1)
  1. RITUXIMAB [Suspect]
     Indication: CHRONIC LYMPHOCYTIC LEUKAEMIA
     Dosage: 400 MG/HOUR IV
     Route: 042
     Dates: start: 20080822, end: 20080822

REACTIONS (2)
  - BLOOD PRESSURE SYSTOLIC INCREASED [None]
  - CHILLS [None]
